FAERS Safety Report 9374849 (Version 1)
Quarter: 2013Q2

REPORT INFORMATION
  Report Type: Spontaneous
  Country: FR (occurrence: FR)
  Receive Date: 20130628
  Receipt Date: 20130628
  Transmission Date: 20140414
  Serious: Yes (Other)
  Sender: FDA-Public Use
  Company Number: FR-ABBOTT-13X-056-1112205-00

PATIENT
  Age: 6 Year
  Sex: Female

DRUGS (1)
  1. MICROPAKINE [Suspect]
     Indication: CONVULSION
     Dosage: 600 MILLIGRAM(S) ;DAILY
     Route: 048

REACTIONS (2)
  - Dysphagia [Unknown]
  - Convulsion [Unknown]
